FAERS Safety Report 11896645 (Version 1)
Quarter: 2016Q1

REPORT INFORMATION
  Report Type: Spontaneous
  Country: CH (occurrence: BR)
  Receive Date: 20160107
  Receipt Date: 20160107
  Transmission Date: 20160526
  Serious: Yes (Hospitalization)
  Sender: FDA-Public Use
  Company Number: CH-LPDUSPRD-20151070

PATIENT
  Sex: Female

DRUGS (1)
  1. FERINJECT [Suspect]
     Active Substance: FERRIC CARBOXYMALTOSE
     Dosage: 1000 MG
     Route: 042

REACTIONS (3)
  - Condition aggravated [Unknown]
  - Hypophosphataemia [Unknown]
  - Hungry bone syndrome [Unknown]

NARRATIVE: CASE EVENT DATE: 20151031
